FAERS Safety Report 6991284-4 (Version None)
Quarter: 2010Q3

REPORT INFORMATION
  Report Type: 
  Country: None (occurrence: None)
  Receive Date: 20100916
  Receipt Date: 20080807
  Transmission Date: 20110219
  Serious: No
  Sender: FDA-Public Use
  Company Number: US-WYE-H05475008

PATIENT
  Age: 6 Month
  Sex: Female
  Weight: 6.81 kg

DRUGS (2)
  1. INFANT ADVIL CONCENTRATED DROPS [Suspect]
     Indication: TEETHING
     Dosage: 1.25 ML X 1
     Route: 048
     Dates: start: 20080806, end: 20080806
  2. ZANTAC [Concomitant]

REACTIONS (3)
  - CHOKING [None]
  - PRODUCT QUALITY ISSUE [None]
  - RETCHING [None]
